FAERS Safety Report 6337527-1 (Version None)
Quarter: 2009Q3

REPORT INFORMATION
  Report Type: 
  Country: None (occurrence: None)
  Receive Date: 20090902
  Receipt Date: 20090831
  Transmission Date: 20100115
  Serious: Yes (Other)
  Sender: FDA-Public Use
  Company Number: US-BRACCO-003308

PATIENT
  Sex: Male

DRUGS (4)
  1. CHOLETEC [Suspect]
     Indication: HEPATOBILIARY SCAN
     Route: 042
     Dates: start: 20090816, end: 20090816
  2. CHOLETEC [Suspect]
     Indication: ABDOMINAL PAIN
     Route: 042
     Dates: start: 20090816, end: 20090816
  3. OXYGEN [Concomitant]
     Dosage: 2 LITER/MIN
     Route: 055
     Dates: start: 20090816, end: 20090816
  4. MORPHINE [Concomitant]
     Indication: HEPATOBILIARY SCAN
     Dates: start: 20090816, end: 20090816

REACTIONS (1)
  - MYOCARDIAL INFARCTION [None]
